APPROVED DRUG PRODUCT: BUSPIRONE HYDROCHLORIDE
Active Ingredient: BUSPIRONE HYDROCHLORIDE
Strength: 10MG
Dosage Form/Route: TABLET;ORAL
Application: A075467 | Product #003
Applicant: MYLAN PHARMACEUTICALS INC
Approved: Feb 28, 2002 | RLD: No | RS: No | Type: DISCN